FAERS Safety Report 9106505 (Version 1)
Quarter: 2013Q1

REPORT INFORMATION
  Report Type: Spontaneous
  Country: CA (occurrence: CA)
  Receive Date: 20130221
  Receipt Date: 20130221
  Transmission Date: 20140127
  Serious: Yes (Other)
  Sender: FDA-Public Use
  Company Number: CA-PFIZER INC-2013034151

PATIENT
  Age: 5 Year
  Sex: Male

DRUGS (4)
  1. CHILDREN^S ADVIL [Suspect]
     Indication: PYREXIA
     Dosage: USUAL DOSE PER AGE
     Route: 048
  2. CHILDREN^S ADVIL [Suspect]
     Indication: NASOPHARYNGITIS
  3. NOVORAPID [Concomitant]
     Indication: DIABETES MELLITUS
     Dosage: AS DIRECTED
     Dates: start: 201209
  4. OXYBUTYNIN [Concomitant]
     Indication: URINARY INCONTINENCE
     Dosage: 1 MG/ML, 1.5 ML, 3X/DAY
     Dates: start: 201107

REACTIONS (1)
  - Diabetes mellitus inadequate control [Recovered/Resolved]
